FAERS Safety Report 17282551 (Version 1)
Quarter: 2020Q1

REPORT INFORMATION
  Report Type: Spontaneous
  Country: US (occurrence: US)
  Receive Date: 20200117
  Receipt Date: 20200117
  Transmission Date: 20200409
  Serious: Yes (Disabling)
  Sender: FDA-Public Use
  Company Number: None

PATIENT
  Sex: Female
  Weight: 58.5 kg

DRUGS (7)
  1. BUPROPION HCL [Concomitant]
     Active Substance: BUPROPION HYDROCHLORIDE
  2. XYREM [Concomitant]
     Active Substance: SODIUM OXYBATE
  3. MELATONIN [Concomitant]
     Active Substance: MELATONIN
  4. SERTRALINE [Concomitant]
     Active Substance: SERTRALINE HYDROCHLORIDE
  5. DECONGESTANTS [Concomitant]
  6. ARMODAFINIL. [Suspect]
     Active Substance: ARMODAFINIL
     Indication: NARCOLEPSY
     Dosage: ?          QUANTITY:1 CAPSULE(S);?
     Route: 048
  7. AMPHETAMINE-DESTROAMPHETAMINE MIXED SALTS EXTENDED RELEASE [Concomitant]

REACTIONS (2)
  - Product substitution issue [None]
  - Drug ineffective [None]
